FAERS Safety Report 9301919 (Version 4)
Quarter: 2013Q2

REPORT INFORMATION
  Report Type: Spontaneous
  Country: US (occurrence: US)
  Receive Date: 20130521
  Receipt Date: 20130613
  Transmission Date: 20140414
  Serious: Yes (Hospitalization, Other)
  Sender: FDA-Public Use
  Company Number: US-PFIZER INC-2013155376

PATIENT
  Age: 56 Year
  Sex: Female
  Weight: 136 kg

DRUGS (12)
  1. LYRICA [Suspect]
     Indication: DIABETIC NEUROPATHY
     Dosage: 75 MG, 2X/DAY
     Route: 048
     Dates: start: 20130502
  2. GLUCOTROL [Suspect]
     Indication: DIABETES MELLITUS
     Dosage: 2.5 MG, 2X/DAY
  3. ACCUPRIL [Suspect]
     Indication: PROTEIN URINE PRESENT
     Dosage: 2.5 MG DAILY
  4. COUMADIN [Concomitant]
     Indication: THROMBOSIS
     Dosage: 2.5 MG DAILY FOR 3 DAYS IN A WEEK AND 2MG DAILY FOR REST OF THE DAYS IN A WEEK
  5. PROZAC [Concomitant]
     Indication: ANXIETY
     Dosage: 40 MG, 1X/DAY
  6. PROZAC [Concomitant]
     Indication: DEPRESSION
  7. BACLOFEN [Concomitant]
     Indication: MUSCLE SPASMS
     Dosage: 10 MG, 3X/DAY
  8. DIAZEPAM [Concomitant]
     Indication: NERVOUS SYSTEM DISORDER
     Dosage: 10 MG, 2X/DAY
  9. TOPAMAX [Concomitant]
     Dosage: 25 MG, 2X/DAY
  10. PRAVASTATIN [Concomitant]
     Indication: BLOOD CHOLESTEROL INCREASED
     Dosage: 80 MG, 1X/DAY
  11. LORTAB [Concomitant]
     Indication: PAIN
     Dosage: 7.5 MG, AS NEEDED
  12. NPH HUMAN INSULIN [Concomitant]
     Dosage: 28 IU, 2X/DAY

REACTIONS (6)
  - Off label use [Unknown]
  - Cerebrovascular accident [Unknown]
  - Hypoaesthesia [Recovering/Resolving]
  - Loss of control of legs [Not Recovered/Not Resolved]
  - Asthenia [Not Recovered/Not Resolved]
  - Weight decreased [Not Recovered/Not Resolved]
